FAERS Safety Report 10247836 (Version 2)
Quarter: 2014Q2

REPORT INFORMATION
  Report Type: Spontaneous
  Country: PL (occurrence: PL)
  Receive Date: 20140619
  Receipt Date: 20140630
  Transmission Date: 20141212
  Serious: Yes (Death)
  Sender: FDA-Public Use
  Company Number: PL-ELI_LILLY_AND_COMPANY-PL201406004681

PATIENT
  Age: 73 Year
  Sex: Male
  Weight: 75 kg

DRUGS (5)
  1. ALIMTA [Suspect]
     Indication: LUNG NEOPLASM MALIGNANT
     Dosage: 800 MG, UNKNOWN
     Route: 042
     Dates: start: 20140207
  2. CISPLATIN [Suspect]
     Indication: LUNG NEOPLASM MALIGNANT
     Dosage: 100 MG, UNKNOWN
     Route: 042
     Dates: start: 20140207
  3. DEXAVEN [Concomitant]
     Indication: PREMEDICATION
     Dosage: 8 MG, UNKNOWN
     Route: 042
     Dates: start: 20140206
  4. FOLIC [Concomitant]
     Indication: PREMEDICATION
     Dosage: 0.4 MG, UNKNOWN
     Route: 048
     Dates: start: 20140129
  5. VITAMIN B12 [Concomitant]

REACTIONS (3)
  - Multi-organ failure [Fatal]
  - Leukopenia [Fatal]
  - Diarrhoea [Fatal]
